FAERS Safety Report 5790133-X (Version None)
Quarter: 2008Q2

REPORT INFORMATION
  Report Type: 
  Country: None (occurrence: None)
  Receive Date: 20080626
  Receipt Date: 20080311
  Transmission Date: 20081010
  Serious: No
  Sender: FDA-Public Use
  Company Number: A0687644A

PATIENT
  Sex: Female

DRUGS (1)
  1. ALLI [Suspect]
     Route: 048

REACTIONS (7)
  - ABDOMINAL PAIN UPPER [None]
  - DRUG INEFFECTIVE [None]
  - FOOD CRAVING [None]
  - FRUSTRATION [None]
  - HUNGER [None]
  - WEIGHT FLUCTUATION [None]
  - WEIGHT INCREASED [None]
